FAERS Safety Report 6732712-9 (Version None)
Quarter: 2010Q2

REPORT INFORMATION
  Report Type: 
  Country: None (occurrence: None)
  Receive Date: 20100514
  Receipt Date: 20100505
  Transmission Date: 20101027
  Serious: Yes (Hospitalization)
  Sender: FDA-Public Use
  Company Number: DE-1181850

PATIENT
  Age: 79 Year
  Sex: Male

DRUGS (7)
  1. AZOPT [Suspect]
     Indication: INTRAOCULAR PRESSURE INCREASED
     Dosage: BID OPHTHALMIC
     Route: 047
     Dates: start: 20091022, end: 20091118
  2. INEGY (INEGY) [Concomitant]
  3. CLOPIDOGREL [Concomitant]
  4. RAMIPRIL [Concomitant]
  5. METFORMIN HCL [Concomitant]
  6. METOSUCCINAT (METOPROLOL SUCCINATE) [Concomitant]
  7. ASPIRIN [Concomitant]

REACTIONS (1)
  - TRANSIENT ISCHAEMIC ATTACK [None]
